FAERS Safety Report 21403929 (Version 1)
Quarter: 2022Q4

REPORT INFORMATION
  Report Type: Spontaneous
  Country: US (occurrence: None)
  Receive Date: 20221003
  Receipt Date: 20221003
  Transmission Date: 20230113
  Serious: Yes (Hospitalization)
  Sender: FDA-Public Use
  Company Number: None

PATIENT
  Age: 72 Year
  Sex: Male
  Weight: 72.8 kg

DRUGS (19)
  1. BEBTELOVIMAB [Suspect]
     Active Substance: BEBTELOVIMAB
     Indication: COVID-19
     Dosage: OTHER FREQUENCY : ONCE;?
     Route: 042
     Dates: start: 20220930, end: 20220930
  2. MAGNESIUM OXIDE [Concomitant]
     Active Substance: MAGNESIUM OXIDE
  3. ALLOPURINOL [Concomitant]
     Active Substance: ALLOPURINOL
  4. ASPIRIN [Concomitant]
     Active Substance: ASPIRIN
  5. ATORVASTATIN [Concomitant]
     Active Substance: ATORVASTATIN
  6. METOPROLOL [Concomitant]
     Active Substance: METOPROLOL
  7. CALCIUM\VITAMIN D [Concomitant]
     Active Substance: CALCIUM\VITAMIN D
  8. PREDNISONE [Concomitant]
     Active Substance: PREDNISONE
  9. LOSARTAN [Concomitant]
     Active Substance: LOSARTAN
  10. VITAMINS [Concomitant]
     Active Substance: VITAMINS
  11. TAMSULOSIN [Concomitant]
     Active Substance: TAMSULOSIN
  12. APIXABAN [Concomitant]
     Active Substance: APIXABAN
  13. TACROLIMUS [Concomitant]
     Active Substance: TACROLIMUS
  14. ALENDRONATE [Concomitant]
     Active Substance: ALENDRONATE SODIUM
  15. ALBUTEROL [Concomitant]
     Active Substance: ALBUTEROL
  16. LEVOTHYROXINE [Concomitant]
     Active Substance: LEVOTHYROXINE
  17. TORSEMIDE [Concomitant]
     Active Substance: TORSEMIDE
  18. ALBUTEROL\IPRATROPIUM [Concomitant]
     Active Substance: ALBUTEROL\IPRATROPIUM
  19. normal saline bolus [Concomitant]

REACTIONS (9)
  - Dyspnoea [None]
  - Cough [None]
  - Nausea [None]
  - Tachypnoea [None]
  - Cardiac failure congestive [None]
  - Respiratory failure [None]
  - COVID-19 pneumonia [None]
  - Atrial fibrillation [None]
  - Infusion related reaction [None]

NARRATIVE: CASE EVENT DATE: 20220930
